FAERS Safety Report 22359272 (Version 1)
Quarter: 2023Q2

REPORT INFORMATION
  Report Type: Spontaneous
  Country: US (occurrence: US)
  Receive Date: 20230524
  Receipt Date: 20230524
  Transmission Date: 20230721
  Serious: No
  Sender: FDA-Public Use
  Company Number: US-VANDA PHARMACEUTICALS, INC-2023ILOUS001909

PATIENT
  Sex: Female

DRUGS (4)
  1. FANAPT [Suspect]
     Active Substance: ILOPERIDONE
     Indication: Schizophrenia
     Dosage: 1 MILLIGRAM, QD (TITRATION PACK:2 TABLETS THE FIRST DAY)
  2. FANAPT [Suspect]
     Active Substance: ILOPERIDONE
     Dosage: 1 MILLIGRAM, QD (TITRATION PACK:2 TABLETS THE NEXT DAY)
  3. FANAPT [Suspect]
     Active Substance: ILOPERIDONE
     Dosage: 4 MILLIGRAM, QD (TITRATION PACK:2 TABLETS THE NEXT DAY)
  4. FANAPT [Suspect]
     Active Substance: ILOPERIDONE
     Dosage: 6 MILLIGRAM, QD (TITRATION PACK:2 TABLETS THE NEXT DAY AND THEN STOPPED)

REACTIONS (1)
  - Throat tightness [Unknown]
